FAERS Safety Report 21721492 (Version 6)
Quarter: 2025Q1

REPORT INFORMATION
  Report Type: Report from Study
  Country: US (occurrence: US)
  Receive Date: 20221213
  Receipt Date: 20250102
  Transmission Date: 20250408
  Serious: Yes (Other)
  Sender: ROCHE
  Company Number: US-ROCHE-2837862

PATIENT
  Age: 61 Year
  Sex: Male
  Weight: 76.5 kg

DRUGS (10)
  1. ZELBORAF [Suspect]
     Active Substance: VEMURAFENIB
     Indication: Metastases to liver
     Dosage: TAKE 3 TABLETS (SWALLOW WHOLE WITH OR WITHOUT FOOD) FOR 28 DAYS
     Route: 048
     Dates: start: 202008
  2. ZELBORAF [Suspect]
     Active Substance: VEMURAFENIB
     Indication: Cholangiocarcinoma
     Route: 048
  3. ZELBORAF [Suspect]
     Active Substance: VEMURAFENIB
     Route: 048
  4. ZELBORAF [Suspect]
     Active Substance: VEMURAFENIB
     Route: 048
  5. COTELLIC [Suspect]
     Active Substance: COBIMETINIB FUMARATE
     Indication: Metastases to liver
     Dosage: EVERY OTHER DAY FOR 21 DAYS. FOLLOWED BY 7 DAY REST.
     Route: 048
     Dates: start: 202008
  6. COTELLIC [Suspect]
     Active Substance: COBIMETINIB FUMARATE
     Indication: Cholangiocarcinoma
     Route: 048
  7. COTELLIC [Suspect]
     Active Substance: COBIMETINIB FUMARATE
     Route: 048
  8. COTELLIC [Suspect]
     Active Substance: COBIMETINIB FUMARATE
     Route: 048
  9. COMPAZINE [Concomitant]
     Active Substance: PROCHLORPERAZINE MALEATE
     Indication: Nausea
     Dosage: FREQUENCY TEXT:AS NEEDED
     Route: 048
  10. COMPAZINE [Concomitant]
     Active Substance: PROCHLORPERAZINE MALEATE
     Indication: Vomiting

REACTIONS (5)
  - Nausea [Recovered/Resolved]
  - Fatigue [Not Recovered/Not Resolved]
  - Diarrhoea [Recovered/Resolved]
  - Malignant melanoma [Unknown]
  - Off label use [Unknown]

NARRATIVE: CASE EVENT DATE: 20200801
